FAERS Safety Report 4967603-7 (Version None)
Quarter: 2006Q2

REPORT INFORMATION
  Report Type: 
  Country: None (occurrence: None)
  Receive Date: 20060410
  Receipt Date: 20060330
  Transmission Date: 20061013
  Serious: Yes (Other)
  Sender: FDA-Public Use
  Company Number: PHHO2006BR05504

PATIENT
  Age: 41 Year
  Sex: Female

DRUGS (2)
  1. TRILEPTAL [Suspect]
     Dosage: 300MG
  2. LAMOTRIGINE [Concomitant]

REACTIONS (7)
  - AMNESIA [None]
  - DEPRESSION [None]
  - DIZZINESS [None]
  - HYPERHIDROSIS [None]
  - IRRITABILITY [None]
  - PANIC ATTACK [None]
  - PETIT MAL EPILEPSY [None]
